FAERS Safety Report 15258302 (Version 3)
Quarter: 2019Q2

REPORT INFORMATION
  Report Type: Report from Study
  Country: IT (occurrence: IT)
  Receive Date: 20180809
  Receipt Date: 20190521
  Transmission Date: 20190711
  Serious: Yes (Hospitalization)
  Sender: FDA-Public Use
  Company Number: IT-ROCHE-2166314

PATIENT
  Age: 66 Year
  Sex: Female

DRUGS (6)
  1. CLONAZEPAM. [Suspect]
     Active Substance: CLONAZEPAM
     Indication: DEPRESSION
     Dosage: RIVOTRIL 2,5 MG/ML GOCCE ORALI SOLUZIONE
     Route: 048
     Dates: start: 20180719, end: 20180719
  2. FLURAZEPAM HYDROCHLORIDE. [Concomitant]
     Active Substance: FLURAZEPAM HYDROCHLORIDE
     Route: 065
  3. LYRICA [Concomitant]
     Active Substance: PREGABALIN
     Route: 065
  4. PANTOPRAZOLE [Concomitant]
     Active Substance: PANTOPRAZOLE
     Route: 065
  5. CYMBALTA [Suspect]
     Active Substance: DULOXETINE HYDROCHLORIDE
     Indication: DEPRESSION
     Dosage: CYMBALTA 60 MG HARD GASTRO-RESISTANT CAPSULES
     Route: 048
     Dates: start: 20180719, end: 20180719
  6. TAUXIB [Concomitant]
     Active Substance: ETORICOXIB
     Dosage: TAUXIB 30 MG COMPRESSE RIVESTITE CON FILM
     Route: 065

REACTIONS (3)
  - Hypokinesia [Recovered/Resolved]
  - Bradyphrenia [Recovered/Resolved]
  - Intentional self-injury [Recovered/Resolved]

NARRATIVE: CASE EVENT DATE: 20180719
